FAERS Safety Report 25829533 (Version 2)
Quarter: 2025Q3

REPORT INFORMATION
  Report Type: Report from Study
  Country: US (occurrence: US)
  Receive Date: 20250922
  Receipt Date: 20250922
  Transmission Date: 20251020
  Serious: No
  Sender: TRAVERE THERAPEUTICS
  Company Number: US-TRAVERE-2025TVT01339

PATIENT
  Age: 58 Year
  Sex: Male

DRUGS (13)
  1. FILSPARI [Suspect]
     Active Substance: SPARSENTAN
     Indication: IgA nephropathy
     Route: 048
     Dates: start: 202505
  2. PEPCID [Concomitant]
     Active Substance: FAMOTIDINE
  3. TUMS [Concomitant]
     Active Substance: CALCIUM CARBONATE
  4. ALLOPURINOL [Concomitant]
     Active Substance: ALLOPURINOL
  5. FISH OIL [Concomitant]
     Active Substance: FISH OIL
  6. ATORVASTATIN [Concomitant]
     Active Substance: ATORVASTATIN
  7. SILDENAFIL [Concomitant]
     Active Substance: SILDENAFIL
  8. CLARITIN [Concomitant]
     Active Substance: LORATADINE
  9. FARXIGA [Concomitant]
     Active Substance: DAPAGLIFLOZIN PROPANEDIOL
  10. FLUTICASONE PROPIONATE [Concomitant]
     Active Substance: FLUTICASONE PROPIONATE
  11. MONTELUKAST SODIUM [Concomitant]
     Active Substance: MONTELUKAST SODIUM
  12. MUCINEX [Concomitant]
     Active Substance: GUAIFENESIN
  13. MAGNESIUM CHLORIDE [Concomitant]
     Active Substance: MAGNESIUM CHLORIDE

REACTIONS (1)
  - Glucose urine present [Unknown]

NARRATIVE: CASE EVENT DATE: 20250727
